FAERS Safety Report 11797775 (Version 1)
Quarter: 2015Q4

REPORT INFORMATION
  Report Type: Spontaneous
  Country: US (occurrence: US)
  Receive Date: 20151203
  Receipt Date: 20151203
  Transmission Date: 20160305
  Serious: Yes (Hospitalization)
  Sender: FDA-Public Use
  Company Number: US-BANPHARM-20154460

PATIENT
  Age: 31 Year
  Sex: Female
  Weight: 202 kg

DRUGS (6)
  1. CETIRIZINE [Suspect]
     Active Substance: CETIRIZINE HYDROCHLORIDE
  2. PARACETAMOL [Suspect]
     Active Substance: ACETAMINOPHEN
  3. PREDNISONE. [Suspect]
     Active Substance: PREDNISONE
  4. ACETYLSALICYLIC ACID [Suspect]
     Active Substance: ASPIRIN
  5. IBUPROFEN UNKNOWN PRODUCT [Suspect]
     Active Substance: IBUPROFEN
  6. CEPHALEXIN. [Suspect]
     Active Substance: CEPHALEXIN

REACTIONS (6)
  - Acute hepatic failure [Recovered/Resolved]
  - Liver injury [Recovered/Resolved]
  - Coagulopathy [Recovered/Resolved]
  - Drug abuse [Recovered/Resolved]
  - Encephalopathy [Recovered/Resolved]
  - Renal failure [Recovered/Resolved]
